FAERS Safety Report 6498339-1 (Version None)
Quarter: 2009Q4

REPORT INFORMATION
  Report Type: 
  Country: None (occurrence: None)
  Receive Date: 20091125
  Receipt Date: 20090626
  Transmission Date: 20100525
  Serious: Yes (Other)
  Sender: FDA-Public Use
  Company Number: 2009BH010716

PATIENT
  Sex: Male
  Weight: 78.3 kg

DRUGS (21)
  1. DIANEAL [Suspect]
     Indication: PERITONEAL DIALYSIS
     Dosage: 7.5 L ; IP
     Route: 033
     Dates: start: 20080101
  2. AMBIEN [Concomitant]
  3. AMITRIPTYLINE HCL [Concomitant]
  4. AMLODIPINE [Concomitant]
  5. ASPIRIN [Concomitant]
  6. ATENOLOL [Concomitant]
  7. CALCITRIOL [Concomitant]
  8. COLACE [Concomitant]
  9. FERROUS SULFATE TAB [Concomitant]
  10. FISH OIL [Concomitant]
  11. FUROSEMIDE [Concomitant]
  12. GABAPENTIN [Concomitant]
  13. NOVOLOG [Concomitant]
  14. ISOSORBIDE MONONITRATE [Concomitant]
  15. LANTUS [Concomitant]
  16. MIRALAX [Concomitant]
  17. NEPHRO-VITE [Concomitant]
  18. ESOMEPRAZOLE [Concomitant]
  19. SEVELAMER [Concomitant]
  20. PLAVIX [Concomitant]
  21. SIMVASTATIN [Concomitant]

REACTIONS (4)
  - ABDOMINAL DISTENSION [None]
  - DISCOMFORT [None]
  - PERITONEAL DIALYSIS COMPLICATION [None]
  - PERITONITIS BACTERIAL [None]
